FAERS Safety Report 15131708 (Version 1)
Quarter: 2018Q4

REPORT INFORMATION
  Report Type: Spontaneous
  Country: US (occurrence: US)
  Receive Date: 20180711
  Receipt Date: 20180711
  Transmission Date: 20190204
  Serious: No
  Sender: FDA-Public Use
  Company Number: US-OPTINOSE US, INC.-US-2018OPT000076

PATIENT
  Age: 44 Year
  Sex: Female

DRUGS (4)
  1. XHANCE [Suspect]
     Active Substance: FLUTICASONE PROPIONATE
     Indication: NASAL SEPTUM DEVIATION
     Dosage: 186 ?G, BID (1 SPRAY IN EACH NOSTRIL 2 TIMES DAILY)
     Route: 045
     Dates: start: 20180426, end: 20180503
  2. XHANCE [Suspect]
     Active Substance: FLUTICASONE PROPIONATE
     Indication: NASAL TURBINATE HYPERTROPHY
  3. XHANCE [Suspect]
     Active Substance: FLUTICASONE PROPIONATE
     Indication: NASAL CONGESTION
  4. XHANCE [Suspect]
     Active Substance: FLUTICASONE PROPIONATE
     Indication: RHINITIS

REACTIONS (3)
  - Product use in unapproved indication [Unknown]
  - Paranasal sinus discomfort [Recovered/Resolved]
  - Headache [Recovered/Resolved]

NARRATIVE: CASE EVENT DATE: 2018
